FAERS Safety Report 5807630-0 (Version None)
Quarter: 2008Q3

REPORT INFORMATION
  Report Type: 
  Country: None (occurrence: None)
  Receive Date: 20080711
  Receipt Date: 20080630
  Transmission Date: 20090109
  Serious: Yes (Hospitalization, Other)
  Sender: FDA-Public Use
  Company Number: GB-TEVA-173779ISR

PATIENT
  Sex: Male

DRUGS (15)
  1. LACTULOSE [Suspect]
  2. METOCLOPRAMIDE [Suspect]
  3. CALCIUM CHLORIDE DIHYDRATE [Suspect]
     Dosage: 1L ONCE DAILY
  4. CLONAZEPAM [Suspect]
  5. FOLIC ACID [Suspect]
  6. ISOFLURANE [Suspect]
  7. LITHIUM CARBONATE [Suspect]
     Indication: POOR QUALITY SLEEP
     Route: 064
  8. OLANZAPINE [Suspect]
  9. POTASSIUM CHLORIDE [Suspect]
     Dosage: 1L ONCE DAILY
  10. RANITIDINE HCL [Suspect]
  11. SODIUM CITRATE [Suspect]
  12. SUXAMETHONIUM [Suspect]
  13. THIOPENTONE [Suspect]
  14. SODIUM CHLORIDE 0.9% [Suspect]
     Dosage: 1
  15. GENERAL ANAESTHETIC [Suspect]

REACTIONS (6)
  - CONVULSION [None]
  - DRUG EXPOSURE DURING PREGNANCY [None]
  - NUCLEAR MAGNETIC RESONANCE IMAGING BRAIN ABNORMAL [None]
  - PREMATURE BABY [None]
  - PULMONARY HYPERTENSION [None]
  - THERAPEUTIC AGENT TOXICITY [None]
